FAERS Safety Report 5376904-2 (Version None)
Quarter: 2007Q2

REPORT INFORMATION
  Report Type: 
  Country: None (occurrence: None)
  Receive Date: 20070628
  Receipt Date: 20070628
  Transmission Date: 20071010
  Serious: Yes (Hospitalization, Disabling)
  Sender: FDA-Public Use
  Company Number: None

PATIENT
  Age: 19 Year
  Sex: Male
  Weight: 70 kg

DRUGS (8)
  1. NELARABINE, 5MG/ML, GSK [Suspect]
     Indication: T-CELL TYPE ACUTE LEUKAEMIA
     Dosage: 1090 MG QD IV
     Route: 042
     Dates: start: 20070430, end: 20070504
  2. NELARABINE, 5MG/ML, GSK [Suspect]
  3. VINCRISTINE [Suspect]
     Indication: T-CELL TYPE ACUTE LEUKAEMIA
     Dosage: 2 MG QD IV   2 DOSES
     Route: 042
     Dates: start: 20070521
  4. VINCRISTINE [Suspect]
     Indication: T-CELL TYPE ACUTE LEUKAEMIA
     Dosage: 2 MG QD IV   2 DOSES
     Route: 042
     Dates: start: 20070528
  5. PEG-ASPARAGINASE [Concomitant]
  6. CYCLOPHOSPHAMIDE [Concomitant]
  7. CYTARABINE [Concomitant]
  8. 6-MP [Concomitant]

REACTIONS (5)
  - ASTHENIA [None]
  - HYPOAESTHESIA [None]
  - HYPOTONIA [None]
  - NEUROPATHY [None]
  - SENSORY LOSS [None]
